FAERS Safety Report 13860795 (Version 1)
Quarter: 2017Q3

REPORT INFORMATION
  Report Type: Spontaneous
  Country: AU (occurrence: AU)
  Receive Date: 20170811
  Receipt Date: 20170811
  Transmission Date: 20171127
  Serious: Yes (Death, Hospitalization)
  Sender: FDA-Public Use
  Company Number: AU-JNJFOC-20170809122

PATIENT
  Age: 73 Year
  Sex: Male

DRUGS (3)
  1. CLEXANE [Interacting]
     Active Substance: ENOXAPARIN SODIUM
     Indication: PULMONARY EMBOLISM
     Route: 065
     Dates: start: 20150320
  2. ASPIRIN. [Concomitant]
     Active Substance: ASPIRIN
     Indication: THROMBOSIS PROPHYLAXIS
     Route: 065
     Dates: start: 20150316
  3. XARELTO [Suspect]
     Active Substance: RIVAROXABAN
     Indication: PULMONARY EMBOLISM
     Route: 048
     Dates: start: 20150326

REACTIONS (4)
  - Cerebral haemorrhage [Fatal]
  - Coagulopathy [Fatal]
  - Labelled drug-drug interaction medication error [Unknown]
  - Medication monitoring error [Unknown]

NARRATIVE: CASE EVENT DATE: 201503
